FAERS Safety Report 5074044-3 (Version None)
Quarter: 2006Q3

REPORT INFORMATION
  Report Type: 
  Country: None (occurrence: None)
  Receive Date: 20060808
  Receipt Date: 20050622
  Transmission Date: 20061208
  Serious: No
  Sender: FDA-Public Use
  Company Number: US-AMGEN-KDL140252

PATIENT
  Age: 66 Year
  Sex: Female
  Weight: 95.3 kg

DRUGS (4)
  1. PROCRIT [Suspect]
     Indication: RENAL FAILURE CHRONIC
     Route: 058
     Dates: start: 20020101
  2. LOPRESSOR [Concomitant]
  3. HYTRIN [Concomitant]
  4. ALLOPURINOL [Concomitant]

REACTIONS (3)
  - BLOOD IRON INCREASED [None]
  - HEPATIC ENZYME INCREASED [None]
  - MUSCULAR WEAKNESS [None]
